FAERS Safety Report 13263097 (Version 1)
Quarter: 2017Q1

REPORT INFORMATION
  Report Type: Spontaneous
  Country: ES (occurrence: ES)
  Receive Date: 20170223
  Receipt Date: 20170223
  Transmission Date: 20170428
  Serious: Yes (Hospitalization, Other)
  Sender: FDA-Public Use
  Company Number: ES-009507513-1702ESP008513

PATIENT
  Age: 75 Year
  Sex: Male

DRUGS (5)
  1. OMBITASVIR [Concomitant]
     Active Substance: OMBITASVIR
  2. RITONAVIR. [Concomitant]
     Active Substance: RITONAVIR
  3. PARITAPREVIR [Concomitant]
     Active Substance: PARITAPREVIR
  4. RIBAVIRIN. [Suspect]
     Active Substance: RIBAVIRIN
     Indication: HEPATITIS C
     Dosage: 1200 MG, DAILY
     Route: 048
  5. DASABUVIR [Concomitant]
     Active Substance: DASABUVIR

REACTIONS (2)
  - Hyperbilirubinaemia [Recovered/Resolved]
  - Pancreatitis acute [Recovered/Resolved]
